FAERS Safety Report 6755092-1 (Version None)
Quarter: 2010Q2

REPORT INFORMATION
  Report Type: 
  Country: None (occurrence: None)
  Receive Date: 20100604
  Receipt Date: 20100526
  Transmission Date: 20101027
  Serious: Yes (Hospitalization)
  Sender: FDA-Public Use
  Company Number: US-BIOGENIDEC-2010BI017285

PATIENT
  Age: 34 Year
  Sex: Female
  Weight: 65 kg

DRUGS (8)
  1. AVONEX [Suspect]
     Indication: MULTIPLE SCLEROSIS
     Route: 030
     Dates: start: 20070226, end: 20090630
  2. AVONEX [Suspect]
     Route: 030
     Dates: start: 20090928
  3. AMITRIPTYLINE [Concomitant]
     Indication: MIGRAINE
     Dates: start: 20030101
  4. ETODOLAC [Concomitant]
     Indication: ARTHRITIS
  5. LYRICA [Concomitant]
     Indication: NERVOUS SYSTEM DISORDER
  6. NEURONTIN [Concomitant]
     Indication: NEUROPATHY PERIPHERAL
  7. PRILOSEC [Concomitant]
     Indication: GASTRIC ULCER
     Dates: start: 20040101
  8. TOPAMAX [Concomitant]
     Indication: MIGRAINE
     Dates: start: 20030101

REACTIONS (11)
  - BLOOD FOLATE DECREASED [None]
  - CONTUSION [None]
  - FALL [None]
  - INFLUENZA LIKE ILLNESS [None]
  - IRRITABLE BOWEL SYNDROME [None]
  - MOOD SWINGS [None]
  - MULTIPLE SCLEROSIS [None]
  - MULTIPLE SCLEROSIS RELAPSE [None]
  - SKELETAL INJURY [None]
  - SKIN LACERATION [None]
  - VITAMIN B12 DECREASED [None]
